FAERS Safety Report 6417740-5 (Version None)
Quarter: 2009Q4

REPORT INFORMATION
  Report Type: 
  Country: None (occurrence: None)
  Receive Date: 20091027
  Receipt Date: 20091027
  Transmission Date: 20100525
  Serious: Yes (Life-Threatening)
  Sender: FDA-Public Use
  Company Number: None

PATIENT
  Age: 88 Year
  Sex: Female
  Weight: 74 kg

DRUGS (14)
  1. HEPARIN SODIUM INJECTION [Suspect]
     Indication: THROMBOSIS PROPHYLAXIS
     Dosage: 5000U SQ Q8H
     Route: 058
     Dates: start: 20090825, end: 20090901
  2. HEPARIN SODIUM [Suspect]
     Indication: THROMBOSIS PROPHYLAXIS
     Dosage: 25,000U IV 500U/HR
     Route: 042
     Dates: start: 20090901, end: 20090905
  3. APAP TAB [Concomitant]
  4. AMIODARONE [Concomitant]
  5. BISACODYL [Concomitant]
  6. DILTIAZEM [Concomitant]
  7. FUROSEMIDE [Concomitant]
  8. LANSOPRAZOLE [Concomitant]
  9. LOSARTAN [Concomitant]
  10. MORPHINE [Concomitant]
  11. OXYCODONE [Concomitant]
  12. SENNA [Concomitant]
  13. TEMAZEPAM [Concomitant]
  14. VANCOMYCIN [Concomitant]

REACTIONS (2)
  - HEPARIN-INDUCED THROMBOCYTOPENIA [None]
  - PLATELET COUNT DECREASED [None]
